FAERS Safety Report 7255857-6 (Version None)
Quarter: 2011Q1

REPORT INFORMATION
  Report Type: 
  Country: None (occurrence: None)
  Receive Date: 20110129
  Receipt Date: 20100518
  Transmission Date: 20110831
  Serious: Yes (Hospitalization)
  Sender: FDA-Public Use
  Company Number: US-ABBOTT-10P-163-0637478-00

PATIENT
  Sex: Female
  Weight: 68.1 kg

DRUGS (2)
  1. CYCLOSPORINE [Concomitant]
     Indication: PRODUCT USED FOR UNKNOWN INDICATION
  2. HUMIRA [Suspect]
     Indication: PSORIASIS
     Dosage: STANDARD DOSE
     Dates: start: 20080901, end: 20100301

REACTIONS (3)
  - DIZZINESS [None]
  - HYPOAESTHESIA [None]
  - HYPERTENSION [None]
